FAERS Safety Report 22961428 (Version 3)
Quarter: 2023Q4

REPORT INFORMATION
  Report Type: Spontaneous
  Country: IE (occurrence: IE)
  Receive Date: 20230920
  Receipt Date: 20231006
  Transmission Date: 20240110
  Serious: Yes (Death, Other)
  Sender: FDA-Public Use
  Company Number: IE-ABBVIE-5389881

PATIENT
  Age: 68 Year
  Sex: Male

DRUGS (1)
  1. ADALIMUMAB [Suspect]
     Active Substance: ADALIMUMAB
     Indication: Psoriasis
     Dosage: UNK
     Route: 058

REACTIONS (2)
  - Oesophageal carcinoma [Fatal]
  - Psoriasis [Unknown]
